FAERS Safety Report 24186481 (Version 1)
Quarter: 2024Q3

REPORT INFORMATION
  Report Type: Spontaneous
  Country: US (occurrence: US)
  Receive Date: 20240808
  Receipt Date: 20240808
  Transmission Date: 20241016
  Serious: Yes (Hospitalization)
  Sender: ACCORD
  Company Number: US-MLMSERVICE-20240722-PI139056-00082-1

PATIENT
  Age: 62 Year
  Sex: Female

DRUGS (15)
  1. ETOPOSIDE [Suspect]
     Active Substance: ETOPOSIDE
     Indication: Nephroblastoma
  2. TOPOTECAN [Suspect]
     Active Substance: TOPOTECAN HYDROCHLORIDE
     Indication: Metastases to muscle
     Dosage: REDUCED BY 20 % FOR CYCLES 4 AND 5 AND BY 50 % FOR CYCLE 6
  3. CARBOPLATIN [Suspect]
     Active Substance: CARBOPLATIN
     Indication: Nephroblastoma
     Dosage: REDUCED BY 20 % FOR CYCLES 4 AND 5 AND BY 50 % FOR CYCLE 6
  4. IFOSFAMIDE [Suspect]
     Active Substance: IFOSFAMIDE
     Indication: Nephroblastoma
  5. CYCLOPHOSPHAMIDE [Suspect]
     Active Substance: CYCLOPHOSPHAMIDE
     Indication: Nephroblastoma
     Dosage: REDUCED BY 20 % FOR CYCLES 4 AND 5 AND BY 50 % FOR CYCLE 6
  6. CARBOPLATIN [Suspect]
     Active Substance: CARBOPLATIN
     Indication: Nephroblastoma
  7. CARBOPLATIN [Suspect]
     Active Substance: CARBOPLATIN
     Indication: Metastases to muscle
     Dosage: REDUCED BY 20 % FOR CYCLES 4 AND 5 AND BY 50 % FOR CYCLE 6
  8. ETOPOSIDE [Suspect]
     Active Substance: ETOPOSIDE
     Indication: Nephroblastoma
     Dosage: REDUCED BY 20 % FOR CYCLES 4 AND 5 AND BY 50 % FOR CYCLE 6
  9. ETOPOSIDE [Suspect]
     Active Substance: ETOPOSIDE
     Indication: Metastases to muscle
  10. IFOSFAMIDE [Suspect]
     Active Substance: IFOSFAMIDE
     Indication: Nephroblastoma
     Dosage: REDUCED BY 20 % FOR CYCLES 4 AND 5 AND BY 50 % FOR CYCLE 6
  11. IFOSFAMIDE [Suspect]
     Active Substance: IFOSFAMIDE
     Indication: Metastases to muscle
  12. TOPOTECAN [Suspect]
     Active Substance: TOPOTECAN HYDROCHLORIDE
     Indication: Metastases to muscle
     Dosage: REDUCED BY 20 % FOR CYCLES 4 AND 5 AND BY 50 % FOR CYCLE 6
  13. TOPOTECAN [Suspect]
     Active Substance: TOPOTECAN HYDROCHLORIDE
     Indication: Nephroblastoma
     Dosage: REDUCED BY 20 % FOR CYCLES 4 AND 5 AND BY 50 % FOR CYCLE 6
  14. CYCLOPHOSPHAMIDE [Suspect]
     Active Substance: CYCLOPHOSPHAMIDE
     Indication: Nephroblastoma
  15. CYCLOPHOSPHAMIDE [Suspect]
     Active Substance: CYCLOPHOSPHAMIDE
     Indication: Metastases to muscle
     Dosage: REDUCED BY 20 % FOR CYCLES 4 AND 5 AND BY 50 % FOR CYCLE 6

REACTIONS (3)
  - Neutropenia [Unknown]
  - Visual impairment [Unknown]
  - Nausea [Unknown]
